FAERS Safety Report 18619154 (Version 1)
Quarter: 2020Q4

REPORT INFORMATION
  Report Type: Spontaneous
  Country: US (occurrence: US)
  Receive Date: 20201210
  Receipt Date: 20201210
  Transmission Date: 20210114
  Serious: Yes (Hospitalization)
  Sender: FDA-Public Use
  Company Number: None

PATIENT
  Age: 39 Year
  Sex: Male
  Weight: 105.3 kg

DRUGS (2)
  1. YESCARTA [Suspect]
     Active Substance: AXICABTAGENE CILOLEUCEL
  2. TOCILIZUMAB. [Suspect]
     Active Substance: TOCILIZUMAB

REACTIONS (16)
  - Somnolence [None]
  - C-reactive protein increased [None]
  - Neurotoxicity [None]
  - Memory impairment [None]
  - Atrioventricular block first degree [None]
  - Confusional state [None]
  - Loss of personal independence in daily activities [None]
  - Nausea [None]
  - Fatigue [None]
  - Disorientation [None]
  - Malaise [None]
  - Serum ferritin increased [None]
  - Tremor [None]
  - Sinus bradycardia [None]
  - Pyrexia [None]
  - Hypotension [None]

NARRATIVE: CASE EVENT DATE: 20200602
